FAERS Safety Report 8862123 (Version 1)
Quarter: 2012Q4

REPORT INFORMATION
  Report Type: 
  Country: GB (occurrence: GB)
  Receive Date: 20121026
  Receipt Date: 20121026
  Transmission Date: 20130627
  Serious: Yes (Hospitalization, Other)
  Sender: FDA-Public Use
  Company Number: GB-MYLANLABS-2012S1021506

PATIENT
  Age: 43 Year
  Sex: Female

DRUGS (5)
  1. DILTIAZEM [Suspect]
     Indication: INTENTIONAL OVERDOSE
     Dosage: 3360mg
     Route: 065
  2. GABAPENTIN [Suspect]
     Indication: INTENTIONAL OVERDOSE
     Dosage: 1800mg
     Route: 065
  3. CITALOPRAM [Suspect]
     Indication: INTENTIONAL OVERDOSE
     Dosage: 560mg
     Route: 065
  4. DIAZEPAM [Suspect]
     Indication: INTENTIONAL OVERDOSE
     Dosage: 115mg
     Route: 065
  5. IRBESARTAN [Suspect]
     Indication: INTENTIONAL OVERDOSE
     Dosage: 1800mg
     Route: 065

REACTIONS (7)
  - Intentional overdose [Recovered/Resolved with Sequelae]
  - Left ventricular dysfunction [Not Recovered/Not Resolved]
  - Renal impairment [Not Recovered/Not Resolved]
  - Atrioventricular block complete [Unknown]
  - Pulmonary oedema [Unknown]
  - Hypoxia [Unknown]
  - Hypotension [Recovering/Resolving]
